FAERS Safety Report 7432146-8 (Version None)
Quarter: 2011Q2

REPORT INFORMATION
  Report Type: 
  Country: None (occurrence: None)
  Receive Date: 20110422
  Receipt Date: 20110412
  Transmission Date: 20111010
  Serious: No
  Sender: FDA-Public Use
  Company Number: US-JNJFOC-20101200383

PATIENT
  Sex: Male

DRUGS (14)
  1. HYDROCHLOROTHIAZIDE [Concomitant]
     Route: 048
  2. TRAMADOL HCL [Concomitant]
     Route: 048
  3. LISINOPRIL [Concomitant]
     Route: 048
  4. GOLIMUMAB [Suspect]
     Route: 058
  5. CARDIZEM [Concomitant]
     Route: 048
  6. POTASSIUM [Concomitant]
     Indication: VITAMIN SUPPLEMENTATION
     Route: 048
  7. ENTOCORT EC [Concomitant]
     Route: 048
  8. DARVOCET [Concomitant]
     Route: 048
  9. GOLIMUMAB [Suspect]
     Indication: ANKYLOSING SPONDYLITIS
     Route: 058
  10. NASACORT [Concomitant]
     Route: 045
  11. NEXIUM [Concomitant]
     Route: 058
  12. COUMADIN [Concomitant]
     Route: 048
  13. METHADONE [Concomitant]
     Route: 048
  14. FOLIC ACID [Concomitant]
     Route: 048

REACTIONS (1)
  - BASAL CELL CARCINOMA [None]
